FAERS Safety Report 4863850-3 (Version None)
Quarter: 2005Q4

REPORT INFORMATION
  Report Type: 
  Country: None (occurrence: None)
  Receive Date: 20051222
  Receipt Date: 20051017
  Transmission Date: 20060501
  Serious: No
  Sender: FDA-Public Use
  Company Number: US-GLAXOSMITHKLINE-A0578442A

PATIENT
  Sex: Female

DRUGS (2)
  1. FLONASE [Suspect]
     Dosage: 1SPR PER DAY
     Route: 045
     Dates: start: 20051014
  2. RHINOCORT [Concomitant]

REACTIONS (4)
  - COUGH [None]
  - HEADACHE [None]
  - NASAL DISCOMFORT [None]
  - THROAT IRRITATION [None]
